FAERS Safety Report 10408812 (Version 1)
Quarter: 2014Q3

REPORT INFORMATION
  Report Type: Report from Study
  Country: CA (occurrence: CA)
  Receive Date: 20140826
  Receipt Date: 20140826
  Transmission Date: 20150326
  Serious: Yes (Hospitalization)
  Sender: FDA-Public Use
  Company Number: CA-JNJFOC-20140820224

PATIENT
  Age: 53 Year
  Sex: Female
  Weight: 60 kg

DRUGS (1)
  1. REMICADE [Suspect]
     Active Substance: INFLIXIMAB
     Indication: CROHN^S DISEASE
     Route: 042
     Dates: start: 20140502

REACTIONS (7)
  - Arthralgia [Unknown]
  - Vaginal discharge [Unknown]
  - Deep vein thrombosis [Unknown]
  - Intestinal resection [Recovering/Resolving]
  - Weight bearing difficulty [Unknown]
  - Vaginal haemorrhage [Unknown]
  - Cellulitis [Recovering/Resolving]

NARRATIVE: CASE EVENT DATE: 201408
